FAERS Safety Report 4928598-5 (Version None)
Quarter: 2006Q1

REPORT INFORMATION
  Report Type: 
  Country: None (occurrence: None)
  Receive Date: 20060301
  Receipt Date: 20060222
  Transmission Date: 20060701
  Serious: Yes (Other)
  Sender: FDA-Public Use
  Company Number: 2006AC00325

PATIENT
  Sex: Female

DRUGS (5)
  1. LOSEC [Suspect]
     Route: 048
     Dates: start: 20050804
  2. POLLINOSAN [Concomitant]
     Dosage: HOMEOPATHIC NOSE SPRAY
     Route: 045
  3. DALACIN [Concomitant]
     Dates: start: 20050701
  4. TAGAMET [Concomitant]
     Route: 048
     Dates: start: 20050701
  5. TEMAZEPAM [Concomitant]
     Route: 048

REACTIONS (2)
  - DRUG EXPOSURE DURING PREGNANCY [None]
  - PREMATURE LABOUR [None]
